FAERS Safety Report 8185150-9 (Version None)
Quarter: 2012Q1

REPORT INFORMATION
  Report Type: 
  Country: None (occurrence: None)
  Receive Date: 20120305
  Receipt Date: 20120229
  Transmission Date: 20120608
  Serious: Yes (Death, Other)
  Sender: FDA-Public Use
  Company Number: RU-SANOFI-AVENTIS-2012SA004435

PATIENT
  Age: 59 Year
  Sex: Female
  Weight: 44 kg

DRUGS (4)
  1. DOCETAXEL [Suspect]
     Route: 065
     Dates: start: 20111226
  2. BLINDED THERAPY [Suspect]
     Route: 065
     Dates: start: 20111226
  3. DOCETAXEL [Suspect]
     Indication: BREAST CANCER
     Dosage: LAST DOSE PRIOR TO SAE: 26DEC2011 (3RD INFUSION)
     Route: 065
     Dates: start: 20111114
  4. BLINDED THERAPY [Suspect]
     Indication: BREAST CANCER
     Dosage: LAST DOSE PRIOR TO SAE: 26DEC2011 (3RD INFUSION)
     Route: 065
     Dates: start: 20111114

REACTIONS (2)
  - RENAL FAILURE ACUTE [None]
  - ANURIA [None]
